FAERS Safety Report 13177129 (Version 2)
Quarter: 2017Q3

REPORT INFORMATION
  Report Type: Report from Study
  Country: US (occurrence: US)
  Receive Date: 20170201
  Receipt Date: 20170731
  Transmission Date: 20171127
  Serious: No
  Sender: FDA-Public Use
  Company Number: US-EXELIXIS-CABO-16007196

PATIENT
  Sex: Female

DRUGS (15)
  1. DIGOXIN. [Concomitant]
     Active Substance: DIGOXIN
  2. METOCLOPRAMIDE HCL [Concomitant]
     Active Substance: METOCLOPRAMIDE HYDROCHLORIDE
  3. CABOMETYX [Suspect]
     Active Substance: CABOZANTINIB S-MALATE
     Indication: RENAL CANCER
     Dosage: 60 MG, QD
     Route: 048
     Dates: start: 20160907, end: 20160910
  4. HYDROCODONE [Concomitant]
     Active Substance: HYDROCODONE
  5. MORPHINE [Concomitant]
     Active Substance: MORPHINE
  6. DOXYCYCLINE HYCLATE. [Concomitant]
     Active Substance: DOXYCYCLINE HYCLATE
  7. SODIUM CHLORIDE. [Concomitant]
     Active Substance: SODIUM CHLORIDE
  8. LISINOPRIL. [Concomitant]
     Active Substance: LISINOPRIL
  9. LIDOCAINE. [Concomitant]
     Active Substance: LIDOCAINE
  10. EVEROLIMUS [Concomitant]
     Active Substance: EVEROLIMUS
  11. METOPROLOL. [Concomitant]
     Active Substance: METOPROLOL
  12. OMEPRAZOLE. [Concomitant]
     Active Substance: OMEPRAZOLE
  13. FUROSEMIDE. [Concomitant]
     Active Substance: FUROSEMIDE
  14. ONDANSETRON [Concomitant]
     Active Substance: ONDANSETRON
  15. ASPIRIN. [Concomitant]
     Active Substance: ASPIRIN

REACTIONS (4)
  - Blood pressure fluctuation [Unknown]
  - Hypersomnia [Unknown]
  - Palpitations [Unknown]
  - Dizziness [Unknown]
